FAERS Safety Report 14608375 (Version 1)
Quarter: 2018Q1

REPORT INFORMATION
  Report Type: Spontaneous
  Country: NL (occurrence: NL)
  Receive Date: 20180307
  Receipt Date: 20180307
  Transmission Date: 20180509
  Serious: Yes (Death, Other)
  Sender: FDA-Public Use
  Company Number: NL-CONCORDIA PHARMACEUTICALS INC.-E2B_00010461

PATIENT

DRUGS (2)
  1. INFLIXIMAB [Suspect]
     Active Substance: INFLIXIMAB
     Indication: COLITIS
  2. PREDNISOLONE. [Suspect]
     Active Substance: PREDNISOLONE
     Indication: COLITIS

REACTIONS (7)
  - Herpes simplex encephalitis [Fatal]
  - Muscular weakness [Unknown]
  - Confusional state [Unknown]
  - Respiratory failure [Unknown]
  - Status epilepticus [Fatal]
  - Clonic convulsion [Unknown]
  - Speech disorder [Unknown]
